FAERS Safety Report 7047441-4 (Version None)
Quarter: 2010Q4

REPORT INFORMATION
  Report Type: 
  Country: None (occurrence: None)
  Receive Date: 20101007
  Receipt Date: 20100923
  Transmission Date: 20110411
  Serious: Yes (Death)
  Sender: FDA-Public Use
  Company Number: AUR-APL-2010-01849

PATIENT
  Age: 76 Year
  Sex: Female
  Weight: 92 kg

DRUGS (18)
  1. METFORMIN [Suspect]
     Dosage: ORAL
     Route: 048
     Dates: start: 20100209, end: 20100209
  2. QUININE [Suspect]
     Dosage: ORAL
     Route: 048
     Dates: start: 20100209, end: 20100210
  3. ADCAL-D3 [Concomitant]
  4. ALENDRONIC ACID [Concomitant]
  5. AMLODIPINE [Concomitant]
  6. ASPIRIN [Concomitant]
  7. ATORVASTATIN [Concomitant]
  8. BISOPROLOL FUMARATE [Concomitant]
  9. FERROUS SULFATE [Concomitant]
  10. GLYCERYL TRINITRATE [Concomitant]
  11. IBUPROFEN [Concomitant]
  12. ISOSORBIDE MONONITRATE [Concomitant]
  13. LEVOTHYROXINE [Concomitant]
  14. PRILOSEC [Concomitant]
  15. PARACETAMOL [Concomitant]
  16. TEMAZEPAM [Concomitant]
  17. OMEPRAZOLE [Concomitant]
  18. VITAMIN D [Concomitant]

REACTIONS (9)
  - CARDIAC ARREST [None]
  - DIARRHOEA [None]
  - DRUG TOXICITY [None]
  - HEPATOCELLULAR INJURY [None]
  - HYPOGLYCAEMIA [None]
  - INTERNATIONAL NORMALISED RATIO INCREASED [None]
  - METABOLIC ACIDOSIS [None]
  - MULTIPLE DRUG OVERDOSE [None]
  - SUDDEN CARDIAC DEATH [None]
